FAERS Safety Report 5454865-5 (Version None)
Quarter: 2007Q3

REPORT INFORMATION
  Report Type: 
  Country: None (occurrence: None)
  Receive Date: 20070917
  Receipt Date: 20060929
  Transmission Date: 20080115
  Serious: No
  Sender: FDA-Public Use
  Company Number: US-ASTRAZENECA-2006UW19110

PATIENT
  Age: 60 Year
  Sex: Female
  Weight: 77.1 kg

DRUGS (3)
  1. SEROQUEL [Suspect]
     Indication: BIPOLAR DISORDER
     Route: 048
  2. DEPAKOTE [Concomitant]
     Route: 048
  3. EFFEXOR [Concomitant]

REACTIONS (6)
  - DRY MOUTH [None]
  - DYSPHAGIA [None]
  - MOTOR DYSFUNCTION [None]
  - SOMNOLENCE [None]
  - TRISMUS [None]
  - WEIGHT INCREASED [None]
